FAERS Safety Report 9399336 (Version 1)
Quarter: 2013Q3

REPORT INFORMATION
  Report Type: Spontaneous
  Country: US (occurrence: US)
  Receive Date: 20130715
  Receipt Date: 20130715
  Transmission Date: 20140515
  Serious: No
  Sender: FDA-Public Use
  Company Number: US-PFIZER INC-2013206528

PATIENT
  Age: 58 Year
  Sex: Male
  Weight: 64.4 kg

DRUGS (2)
  1. NICOTROL NASAL SPRAY [Suspect]
     Indication: SMOKING CESSATION THERAPY
     Dosage: UNK, AS NEEDED
     Dates: start: 20130707, end: 201307
  2. NICOTROL NASAL SPRAY [Suspect]
     Dosage: UNK, ONE TIME AT NIGHT
     Dates: start: 201307

REACTIONS (2)
  - Headache [Unknown]
  - Sneezing [Unknown]
